FAERS Safety Report 18393123 (Version 1)
Quarter: 2020Q4

REPORT INFORMATION
  Report Type: Spontaneous
  Country: AR (occurrence: AR)
  Receive Date: 20201016
  Receipt Date: 20201016
  Transmission Date: 20210114
  Serious: Yes (Other)
  Sender: FDA-Public Use
  Company Number: AR-PFIZER INC-2020400700

PATIENT
  Age: 52 Year
  Sex: Male

DRUGS (2)
  1. SUTENT [Suspect]
     Active Substance: SUNITINIB MALATE
     Indication: METASTATIC RENAL CELL CARCINOMA
     Dosage: UNK, DAILY
     Dates: start: 20170223
  2. SUTENT [Suspect]
     Active Substance: SUNITINIB MALATE
     Dosage: UNK, CYCLIC (2 WEEKS ON AND 7 TO 10 DAYS OFF)
     Dates: start: 202009

REACTIONS (1)
  - COVID-19 [Recovered/Resolved]

NARRATIVE: CASE EVENT DATE: 2020
